FAERS Safety Report 9644927 (Version 1)
Quarter: 2013Q4

REPORT INFORMATION
  Report Type: Spontaneous
  Country: US (occurrence: US)
  Receive Date: 20131025
  Receipt Date: 20131025
  Transmission Date: 20140711
  Serious: Yes (Other)
  Sender: FDA-Public Use
  Company Number: US-PFIZER INC-2013304715

PATIENT
  Age: 66 Year
  Sex: Female
  Weight: 48.98 kg

DRUGS (4)
  1. CHANTIX [Suspect]
     Indication: SMOKING CESSATION THERAPY
     Dosage: 0.5 MG, 1X/DAY
     Dates: start: 20130920, end: 20130922
  2. CHANTIX [Suspect]
     Dosage: 0.5 MG, 2X/DAY
     Dates: start: 20130923, end: 20130926
  3. CHANTIX [Suspect]
     Dosage: 1 MG, 2X/DAY
     Dates: start: 20130927, end: 20131020
  4. SYNTHROID [Concomitant]
     Indication: THYROIDECTOMY
     Dosage: 0.125 MG, 1X/DAY

REACTIONS (4)
  - Aggression [Unknown]
  - Insomnia [Unknown]
  - Abnormal dreams [Unknown]
  - Feeling abnormal [Unknown]
